FAERS Safety Report 6264659-9 (Version None)
Quarter: 2009Q3

REPORT INFORMATION
  Report Type: 
  Country: None (occurrence: None)
  Receive Date: 20090710
  Receipt Date: 20090706
  Transmission Date: 20100115
  Serious: Yes (Other)
  Sender: FDA-Public Use
  Company Number: US-AVENTIS-200915922US

PATIENT
  Age: 58 Year
  Sex: Female

DRUGS (4)
  1. LANTUS [Suspect]
     Indication: TYPE 2 DIABETES MELLITUS
     Route: 058
  2. OPTICLIK GREY [Suspect]
     Indication: TYPE 2 DIABETES MELLITUS
  3. REGULAR INSULIN [Concomitant]
     Dosage: DOSE: 2-3
  4. UNKNOWN DRUG [Concomitant]
     Dosage: DOSE: UNK

REACTIONS (1)
  - BREAST CANCER [None]
